FAERS Safety Report 12582992 (Version 1)
Quarter: 2016Q3

REPORT INFORMATION
  Report Type: Spontaneous
  Country: US (occurrence: US)
  Receive Date: 20160722
  Receipt Date: 20160722
  Transmission Date: 20161109
  Serious: Yes (Other)
  Sender: FDA-Public Use
  Company Number: US-PFIZER INC-2016347965

PATIENT
  Sex: Female

DRUGS (1)
  1. PREPARATION H CREAM MAX STRENGTH [Suspect]
     Active Substance: GLYCERIN\PETROLATUM\PHENYLEPHRINE HYDROCHLORIDE\PRAMOXINE HYDROCHLORIDE
     Dosage: UNK

REACTIONS (2)
  - Rectal haemorrhage [Unknown]
  - Abdominal pain upper [Unknown]

NARRATIVE: CASE EVENT DATE: 20160714
